FAERS Safety Report 20175239 (Version 1)
Quarter: 2021Q4

REPORT INFORMATION
  Report Type: Spontaneous
  Country: US (occurrence: None)
  Receive Date: 20211210
  Receipt Date: 20211210
  Transmission Date: 20220303
  Serious: Yes (Other)
  Sender: FDA-Public Use
  Company Number: None

PATIENT
  Age: 58 Year
  Sex: Male
  Weight: 105.69 kg

DRUGS (2)
  1. CASIRIVIMAB [Suspect]
     Active Substance: CASIRIVIMAB
     Dosage: FREQUENCY : ONCE;?
     Route: 058
  2. IMDEVIMAB [Suspect]
     Active Substance: IMDEVIMAB

REACTIONS (1)
  - Syncope [None]

NARRATIVE: CASE EVENT DATE: 20211203
